FAERS Safety Report 11073760 (Version 2)
Quarter: 2015Q2

REPORT INFORMATION
  Report Type: Spontaneous
  Country: NZ (occurrence: NZ)
  Receive Date: 20150428
  Receipt Date: 20150519
  Transmission Date: 20150821
  Serious: Yes (Other)
  Sender: FDA-Public Use
  Company Number: NZ-BAXTER-2015BAX022035

PATIENT
  Age: 62 Year
  Sex: Male

DRUGS (7)
  1. VINCRISTINE [Suspect]
     Active Substance: VINCRISTINE
     Indication: PRODUCT USED FOR UNKNOWN INDICATION
     Route: 042
     Dates: start: 20150325
  2. SODIUM CHLORIDE, 0.9%, SOLUTION FOR INFUSION [Suspect]
     Active Substance: SODIUM CHLORIDE
     Indication: PRODUCT USED FOR UNKNOWN INDICATION
     Route: 042
     Dates: start: 20150325
  3. SODIUM CHLORIDE, 0.9%, SOLUTION FOR INFUSION [Suspect]
     Active Substance: SODIUM CHLORIDE
     Route: 042
  4. RITUXIMAB [Suspect]
     Active Substance: RITUXIMAB
     Indication: PRODUCT USED FOR UNKNOWN INDICATION
     Route: 042
     Dates: start: 20150325
  5. DOXORUBICIN [Suspect]
     Active Substance: DOXORUBICIN
     Indication: PRODUCT USED FOR UNKNOWN INDICATION
     Route: 042
     Dates: start: 20150325
  6. SODIUM CHLORIDE, 0.9%, SOLUTION FOR INFUSION [Suspect]
     Active Substance: SODIUM CHLORIDE
     Route: 042
  7. ENDOXAN, 2000MG, POWDER FOR INJECTION [Suspect]
     Active Substance: CYCLOPHOSPHAMIDE
     Indication: PRODUCT USED FOR UNKNOWN INDICATION
     Route: 042
     Dates: start: 20150325

REACTIONS (3)
  - Chest pain [Recovered/Resolved]
  - Dyspnoea [Recovered/Resolved]
  - Hypotension [Recovered/Resolved]

NARRATIVE: CASE EVENT DATE: 20150415
